FAERS Safety Report 10156957 (Version 2)
Quarter: 2014Q2

REPORT INFORMATION
  Report Type: Spontaneous
  Country: US (occurrence: US)
  Receive Date: 20140507
  Receipt Date: 20140620
  Transmission Date: 20141212
  Serious: Yes (Other)
  Sender: FDA-Public Use
  Company Number: US-JNJFOC-20140501964

PATIENT
  Sex: Female
  Weight: 90.72 kg

DRUGS (10)
  1. STELARA [Suspect]
     Indication: PSORIASIS
     Route: 058
     Dates: start: 2012
  2. ATORVASTATIN [Concomitant]
     Route: 048
  3. KAPIDEX [Concomitant]
     Route: 048
  4. TRIAMTERENE HYDROCHLOROTHIAZIDE [Concomitant]
     Route: 048
  5. METFORMIN [Concomitant]
     Route: 048
     Dates: start: 201404
  6. AMBIEN [Concomitant]
     Route: 048
  7. ASPIRIN [Concomitant]
     Dosage: FULL STRENGTH
     Route: 048
  8. VITAMIN B COMPLEX [Concomitant]
     Route: 048
  9. VITAMIN D [Concomitant]
     Route: 048
  10. FOLIC ACID [Concomitant]
     Route: 048

REACTIONS (1)
  - Cataract [Not Recovered/Not Resolved]
